FAERS Safety Report 25107054 (Version 1)
Quarter: 2025Q1

REPORT INFORMATION
  Report Type: Spontaneous
  Country: CN (occurrence: CN)
  Receive Date: 20250321
  Receipt Date: 20250321
  Transmission Date: 20250409
  Serious: Yes (Life-Threatening, Hospitalization)
  Sender: EISAI
  Company Number: CN-Eisai-EC-2025-186209

PATIENT
  Age: 64 Year
  Sex: Female
  Weight: 49.3 kg

DRUGS (2)
  1. ERIBULIN [Suspect]
     Active Substance: ERIBULIN
     Indication: Bone sarcoma
     Dates: start: 20250306, end: 20250306
  2. SINTILIMAB [Suspect]
     Active Substance: SINTILIMAB
     Indication: Bone sarcoma
     Dates: start: 20250306, end: 20250306

REACTIONS (1)
  - White blood cell count decreased [Recovering/Resolving]

NARRATIVE: CASE EVENT DATE: 20250311
